FAERS Safety Report 8333074-6 (Version None)
Quarter: 2012Q2

REPORT INFORMATION
  Report Type: 
  Country: None (occurrence: None)
  Receive Date: 20120503
  Receipt Date: 20120427
  Transmission Date: 20120825
  Serious: Yes (Other)
  Sender: FDA-Public Use
  Company Number: PHEH2011US05917

PATIENT
  Sex: Female

DRUGS (7)
  1. NORVASC [Concomitant]
  2. PRILOSEC [Concomitant]
  3. AREDIA [Suspect]
     Dosage: 90 MG
  4. AMPICILLIN [Concomitant]
  5. VASOTEC [Concomitant]
  6. VERAPAMIL [Concomitant]
  7. METHADONE HCL [Concomitant]

REACTIONS (35)
  - SUPRAVENTRICULAR TACHYCARDIA [None]
  - CARDIOMEGALY [None]
  - ABDOMINAL PAIN [None]
  - PELVIC PAIN [None]
  - HIV INFECTION [None]
  - VAGINITIS BACTERIAL [None]
  - CHEST PAIN [None]
  - PALPITATIONS [None]
  - FATIGUE [None]
  - DEPRESSION [None]
  - ANGINA PECTORIS [None]
  - HYPOAESTHESIA [None]
  - INSOMNIA [None]
  - DYSPNOEA [None]
  - ATELECTASIS [None]
  - VAGINAL DISCHARGE [None]
  - TRICHOMONIASIS [None]
  - CARDIAC FAILURE CONGESTIVE [None]
  - COORDINATION ABNORMAL [None]
  - NAUSEA [None]
  - HYPERHIDROSIS [None]
  - MULTIPLE MYELOMA [None]
  - ATAXIA [None]
  - BRADYCARDIA [None]
  - ANXIETY [None]
  - COUGH [None]
  - PNEUMONIA [None]
  - PARAESTHESIA [None]
  - GASTROOESOPHAGEAL REFLUX DISEASE [None]
  - UPPER RESPIRATORY TRACT INFECTION [None]
  - HYPERTENSION [None]
  - ANHEDONIA [None]
  - DERMATITIS [None]
  - VIRAL INFECTION [None]
  - SUICIDAL IDEATION [None]
